FAERS Safety Report 11682664 (Version 1)
Quarter: 2015Q4

REPORT INFORMATION
  Report Type: Spontaneous
  Country: US (occurrence: US)
  Receive Date: 20151029
  Receipt Date: 20151029
  Transmission Date: 20160304
  Serious: No
  Sender: FDA-Public Use
  Company Number: US-BAYER-2015-455420

PATIENT
  Age: 79 Year
  Sex: Male
  Weight: 97.52 kg

DRUGS (1)
  1. MIRALAX [Suspect]
     Active Substance: POLYETHYLENE GLYCOL 3350
     Indication: COLONOSCOPY
     Dosage: 14 DOSES IN 32 OUNCES OF LIQUID DRINKING IT IN 15 MINUTE INTERVALS AND THEN TAKE ANOTHER 14 DOSES
     Route: 048
     Dates: start: 2014

REACTIONS (2)
  - Product use issue [Unknown]
  - Product use issue [Unknown]

NARRATIVE: CASE EVENT DATE: 20151027
